FAERS Safety Report 20427349 (Version 1)
Quarter: 2022Q1

REPORT INFORMATION
  Report Type: Other
  Country: US (occurrence: US)
  Receive Date: 20220204
  Receipt Date: 20220204
  Transmission Date: 20220423
  Serious: Yes (Other)
  Sender: FDA-Public Use
  Company Number: US-Amarin Pharma, Inc.-2022AMR000021

PATIENT
  Age: 67 Year
  Sex: Female
  Weight: 97.610 kg

DRUGS (10)
  1. VASCEPA [Suspect]
     Active Substance: ICOSAPENT ETHYL
     Indication: Cardiac disorder
     Route: 048
  2. LEVOTHYROXINE [Concomitant]
     Active Substance: LEVOTHYROXINE
     Indication: Thyroid disorder
     Dates: start: 202105
  3. DICLOFENAC SODIUM [Concomitant]
     Active Substance: DICLOFENAC SODIUM
     Indication: Arthritis
  4. LOSARTAN POTASSIUM [Concomitant]
     Active Substance: LOSARTAN POTASSIUM
     Indication: Blood cholesterol abnormal
  5. ESCITAL [Concomitant]
     Indication: Depression
     Dates: start: 2015
  6. GLIMEPIRIDE [Concomitant]
     Active Substance: GLIMEPIRIDE
     Indication: Diabetes mellitus
     Dates: start: 2020
  7. Amitriptyline, HCL [Concomitant]
     Indication: Migraine
     Dates: start: 2020
  8. CALCITRIOL [Concomitant]
     Active Substance: CALCITRIOL
     Indication: Mineral supplementation
     Dates: start: 2019
  9. ASPIRIN [Concomitant]
     Active Substance: ASPIRIN
     Indication: Anticoagulant therapy
     Dates: start: 2021
  10. FOLIC ACID [Concomitant]
     Active Substance: FOLIC ACID
     Indication: Vitamin supplementation
     Dates: start: 2015

REACTIONS (10)
  - Cerebrovascular accident [Recovered/Resolved]
  - Pulmonary embolism [Unknown]
  - Breast cancer [Unknown]
  - Dysphagia [Recovered/Resolved]
  - Myocardial infarction [Recovered/Resolved]
  - Coma [Recovered/Resolved]
  - Malignant melanoma [Recovered/Resolved]
  - Vein collapse [Unknown]
  - Purulent discharge [Unknown]
  - Inappropriate schedule of product administration [Unknown]

NARRATIVE: CASE EVENT DATE: 20210101
